FAERS Safety Report 8599160-0 (Version None)
Quarter: 2012Q3

REPORT INFORMATION
  Report Type: 
  Country: None (occurrence: None)
  Receive Date: 20120816
  Receipt Date: 20120813
  Transmission Date: 20120928
  Serious: Yes (Hospitalization, Other)
  Sender: FDA-Public Use
  Company Number: US-PFIZER INC-2012140556

PATIENT
  Age: 49 Year
  Sex: Female
  Weight: 65 kg

DRUGS (7)
  1. ZOLOFT [Concomitant]
     Indication: ANXIETY
  2. GEODON [Suspect]
     Indication: BORDERLINE PERSONALITY DISORDER
     Dosage: UNK
     Route: 048
     Dates: end: 20120602
  3. VISTARIL [Concomitant]
     Indication: ANXIETY
     Dosage: 50 MG, 3X/DAY
     Dates: start: 20120424
  4. QUETIAPINE [Concomitant]
     Dosage: UNK
  5. ZOLOFT [Concomitant]
     Indication: DEPRESSION
  6. GEODON [Suspect]
     Indication: BIPOLAR DISORDER
     Dosage: 80 MG, 1X/DAY
     Route: 048
     Dates: start: 20120529
  7. ZOLOFT [Concomitant]
     Indication: BIPOLAR DISORDER
     Dosage: 50 MG DAILY
     Dates: start: 20120424

REACTIONS (16)
  - EYE MOVEMENT DISORDER [None]
  - MUSCLE RIGIDITY [None]
  - DRUG INTOLERANCE [None]
  - EXTRAPYRAMIDAL DISORDER [None]
  - ABNORMAL BEHAVIOUR [None]
  - PERSONALITY DISORDER [None]
  - LOSS OF CONSCIOUSNESS [None]
  - WITHDRAWAL SYNDROME [None]
  - MALAISE [None]
  - HYPERTENSION [None]
  - INCORRECT DOSE ADMINISTERED [None]
  - BLOOD PRESSURE FLUCTUATION [None]
  - MUSCLE SPASMS [None]
  - BACK DISORDER [None]
  - PULSE PRESSURE INCREASED [None]
  - EMOTIONAL DISORDER [None]
